FAERS Safety Report 6903665-5 (Version None)
Quarter: 2010Q3

REPORT INFORMATION
  Report Type: 
  Country: None (occurrence: None)
  Receive Date: 20100803
  Receipt Date: 20081105
  Transmission Date: 20110219
  Serious: No
  Sender: FDA-Public Use
  Company Number: US-PFIZER INC-2008069891

PATIENT
  Sex: Female
  Weight: 64.5 kg

DRUGS (4)
  1. LYRICA [Suspect]
     Indication: ARTHRITIS
     Route: 048
     Dates: start: 20080731, end: 20080818
  2. LYRICA [Suspect]
  3. LYRICA [Suspect]
     Indication: OSTEOARTHRITIS
  4. GABAPENTIN [Concomitant]

REACTIONS (4)
  - ABDOMINAL DISTENSION [None]
  - LETHARGY [None]
  - PRURITUS [None]
  - SOMNOLENCE [None]
